FAERS Safety Report 5730208-4 (Version None)
Quarter: 2008Q2

REPORT INFORMATION
  Report Type: 
  Country: None (occurrence: None)
  Receive Date: 20080507
  Receipt Date: 20080428
  Transmission Date: 20081010
  Serious: Yes (Hospitalization, Other)
  Sender: FDA-Public Use
  Company Number: US-NOVOPROD-272941

PATIENT
  Age: 53 Year
  Sex: Female

DRUGS (5)
  1. NOVOLIN 70/30 [Suspect]
     Indication: TYPE 1 DIABETES MELLITUS
     Dosage: 70 IU, QD
     Route: 058
  2. NOVOLIN 70/30 [Suspect]
  3. NOVOLIN 70/30 [Suspect]
  4. NOVOLIN 70/30 [Suspect]
  5. NOVOLIN 70/30 [Suspect]

REACTIONS (4)
  - BLOOD GLUCOSE INCREASED [None]
  - DEHYDRATION [None]
  - DIZZINESS [None]
  - FATIGUE [None]
